FAERS Safety Report 24669250 (Version 1)
Quarter: 2024Q4

REPORT INFORMATION
  Report Type: Spontaneous
  Country: US (occurrence: US)
  Receive Date: 20241127
  Receipt Date: 20241127
  Transmission Date: 20250114
  Serious: No
  Sender: AMGEN
  Company Number: US-AMGEN-USASP2024232618

PATIENT
  Age: 41 Year
  Sex: Male

DRUGS (7)
  1. PREDNISONE [Suspect]
     Active Substance: PREDNISONE
     Indication: Product used for unknown indication
     Dosage: UNK (MAINTENANCE)
     Route: 065
  2. LUMASIRAN [Concomitant]
     Active Substance: LUMASIRAN
     Indication: Primary hyperoxaluria
     Route: 065
  3. ALEMTUZUMAB [Concomitant]
     Active Substance: ALEMTUZUMAB
  4. SOLU-MEDROL [Concomitant]
     Active Substance: METHYLPREDNISOLONE SODIUM SUCCINATE
  5. TACROLIMUS [Concomitant]
     Active Substance: TACROLIMUS
     Dosage: UNK (MAINTENANCE)
  6. MYCOPHENOLIC ACID [Concomitant]
     Active Substance: MYCOPHENOLIC ACID
     Dosage: UNK (MAINTENANCE)
  7. PYRIDOXINE [Concomitant]
     Active Substance: PYRIDOXINE
     Indication: Primary hyperoxaluria

REACTIONS (1)
  - Hypervolaemia [Unknown]
